FAERS Safety Report 5265399-5 (Version None)
Quarter: 2007Q1

REPORT INFORMATION
  Report Type: 
  Country: None (occurrence: None)
  Receive Date: 20070314
  Receipt Date: 20070305
  Transmission Date: 20070707
  Serious: Yes (Other)
  Sender: FDA-Public Use
  Company Number: US-PFIZER INC-2007017598

PATIENT
  Sex: Male
  Weight: 102.1 kg

DRUGS (11)
  1. CHANTIX [Suspect]
     Indication: EX-SMOKER
  2. DIGOXIN [Concomitant]
  3. METOLAZONE [Concomitant]
  4. FUROSEMIDE [Concomitant]
  5. POTASSIUM ACETATE [Concomitant]
  6. METOPROLOL SUCCINATE [Concomitant]
  7. CARDIZEM [Concomitant]
  8. ADVAIR DISKUS 100/50 [Concomitant]
  9. ALL OTHER THERAPEUTIC PRODUCTS [Concomitant]
  10. ALTACE [Concomitant]
  11. NORVASC [Concomitant]

REACTIONS (5)
  - BLOOD DISORDER [None]
  - BLOOD GLUCOSE INCREASED [None]
  - DEHYDRATION [None]
  - HYPERHIDROSIS [None]
  - POLLAKIURIA [None]
